FAERS Safety Report 12156465 (Version 2)
Quarter: 2018Q2

REPORT INFORMATION
  Report Type: Report from Study
  Country: FR (occurrence: FR)
  Receive Date: 20160307
  Receipt Date: 20180620
  Transmission Date: 20180711
  Serious: Yes (Other)
  Sender: FDA-Public Use
  Company Number: FR-VIIV HEALTHCARE LIMITED-B0550949A

PATIENT
  Age: 8 Year
  Sex: Male

DRUGS (1)
  1. ZIDOVUDINE. [Suspect]
     Active Substance: ZIDOVUDINE
     Indication: HIV INFECTION

REACTIONS (2)
  - Exposure during pregnancy [Unknown]
  - Pinealoblastoma [Unknown]

NARRATIVE: CASE EVENT DATE: 2006
